FAERS Safety Report 9366595 (Version 1)
Quarter: 2013Q2

REPORT INFORMATION
  Report Type: Spontaneous
  Country: US (occurrence: None)
  Receive Date: 20130620
  Receipt Date: 20130620
  Transmission Date: 20140414
  Serious: Yes (Hospitalization, Other)
  Sender: FDA-Public Use
  Company Number: US-ZYDUS-001455

PATIENT
  Age: 73 Year
  Sex: Female

DRUGS (1)
  1. WARFARIN [Suspect]

REACTIONS (2)
  - Haematoma [None]
  - Upper airway obstruction [None]
